FAERS Safety Report 24293094 (Version 1)
Quarter: 2024Q3

REPORT INFORMATION
  Report Type: Spontaneous
  Country: US (occurrence: None)
  Receive Date: 20240906
  Receipt Date: 20240906
  Transmission Date: 20241016
  Serious: No
  Sender: DOMPE FARMACEUTICI
  Company Number: US-FARMAPROD-202311-3460

PATIENT
  Sex: Female

DRUGS (14)
  1. OXERVATE [Suspect]
     Active Substance: CENEGERMIN-BKBJ
     Indication: Neurotrophic keratopathy
     Route: 047
     Dates: start: 20231116
  2. FERROUS GLUCONATE [Concomitant]
     Active Substance: FERROUS GLUCONATE
     Dosage: 240 (27) MG
  3. REFRESH DIGITAL PF [Concomitant]
     Active Substance: CARBOXYMETHYLCELLULOSE SODIUM\GLYCERIN\POLYSORBATE 80
  4. XIIDRA [Concomitant]
     Active Substance: LIFITEGRAST
  5. RESTASIS [Concomitant]
     Active Substance: CYCLOSPORINE
  6. CALCIUM [Concomitant]
     Active Substance: CALCIUM
     Dosage: 500 (1250)
  7. VITAMIN D-400 [Concomitant]
  8. SOTALOL [Concomitant]
     Active Substance: SOTALOL\SOTALOL HYDROCHLORIDE
  9. ASPIRIN [Concomitant]
     Active Substance: ASPIRIN
  10. DICLOFENAC SODIUM [Concomitant]
     Active Substance: DICLOFENAC\DICLOFENAC SODIUM
  11. ATORVASTATIN CALCIUM [Concomitant]
     Active Substance: ATORVASTATIN CALCIUM
  12. LEVOTHYROXINE SODIUM [Concomitant]
     Active Substance: LEVOTHYROXINE SODIUM
  13. OMEPRAZOLE [Concomitant]
     Active Substance: OMEPRAZOLE
  14. PREGABALIN [Concomitant]
     Active Substance: PREGABALIN

REACTIONS (2)
  - Eye pain [Unknown]
  - Ocular discomfort [Unknown]
